FAERS Safety Report 9980775 (Version 4)
Quarter: 2014Q2

REPORT INFORMATION
  Report Type: Spontaneous
  Country: JP (occurrence: JP)
  Receive Date: 20140307
  Receipt Date: 20140505
  Transmission Date: 20141212
  Serious: Yes (Death, Life-Threatening, Hospitalization)
  Sender: FDA-Public Use
  Company Number: JP-BRISTOL-MYERS SQUIBB COMPANY-19977511

PATIENT
  Age: 54 Year
  Sex: Male
  Weight: 65.8 kg

DRUGS (11)
  1. ERBITUX SOLN FOR INF 5MG/ML [Suspect]
     Indication: COLON CANCER
     Dosage: INFUSION.;650 MG 1 IN 1 D
     Route: 041
     Dates: start: 20131217, end: 20131217
  2. TOPOTECIN [Suspect]
     Indication: COLON CANCER
     Dosage: INFUSION.
     Route: 041
     Dates: start: 20131217, end: 201312
  3. 5-FLUOROURACIL [Suspect]
     Indication: COLON CANCER
     Dosage: INFUSION.
     Route: 041
     Dates: start: 20131217
  4. XELODA [Suspect]
     Indication: COLON CANCER
     Dosage: 1ST CYCLE:19AUG2013;2ND CYCLE:09SEP2013;3:07OCT2013;4:28DEC2013;5:18NOV013
     Route: 048
     Dates: start: 20130819, end: 20131202
  5. ELPLAT [Suspect]
     Indication: COLON CANCER
     Dosage: DOSE REDUCED TO 150MG ON 07OCT2013
     Route: 041
     Dates: start: 20130819, end: 20131118
  6. AVASTIN [Suspect]
     Indication: COLON CANCER
     Dosage: REDUCED TO 400 MG ON 7OCT2013
     Route: 042
     Dates: start: 20130819, end: 20131118
  7. ISOVORIN [Concomitant]
     Indication: COLON CANCER
     Dosage: INFUSION.
     Route: 041
     Dates: start: 20131217, end: 20131217
  8. POLARAMINE [Concomitant]
     Indication: PROPHYLAXIS
     Route: 041
     Dates: start: 20131217, end: 20131217
  9. KYTRIL [Concomitant]
     Indication: PROPHYLAXIS
     Route: 041
     Dates: start: 20131217, end: 20131217
  10. ORGADRONE [Concomitant]
     Indication: PROPHYLAXIS
     Route: 041
     Dates: start: 20131217, end: 20131217
  11. TAKEPRON [Concomitant]
     Indication: PROPHYLAXIS
     Route: 040
     Dates: start: 20131217, end: 20131217

REACTIONS (5)
  - Pneumonia [Fatal]
  - Respiratory failure [Fatal]
  - Febrile neutropenia [Recovered/Resolved]
  - Thrombocytopenia [Not Recovered/Not Resolved]
  - Dermatitis acneiform [Unknown]
